FAERS Safety Report 23707312 (Version 1)
Quarter: 2024Q2

REPORT INFORMATION
  Report Type: Spontaneous
  Country: ES (occurrence: ES)
  Receive Date: 20240404
  Receipt Date: 20240404
  Transmission Date: 20240716
  Serious: Yes (Other)
  Sender: FDA-Public Use
  Company Number: ES-JNJFOC-20240381864

PATIENT
  Sex: Female

DRUGS (1)
  1. IMBRUVICA [Suspect]
     Active Substance: IBRUTINIB
     Indication: Chronic lymphocytic leukaemia recurrent
     Route: 048
     Dates: start: 202109

REACTIONS (5)
  - Colitis [Recovering/Resolving]
  - Arthralgia [Unknown]
  - Neutropenia [Unknown]
  - Drug ineffective [Unknown]
  - Thrombocytopenia [Unknown]
